FAERS Safety Report 15310749 (Version 3)
Quarter: 2019Q1

REPORT INFORMATION
  Report Type: Report from Study
  Country: ES (occurrence: ES)
  Receive Date: 20180823
  Receipt Date: 20190213
  Transmission Date: 20190417
  Serious: Yes (Death)
  Sender: FDA-Public Use
  Company Number: ES-PFIZER INC-2018338845

PATIENT
  Age: 74 Year
  Sex: Female

DRUGS (7)
  1. VANCOMYCIN HCL [Suspect]
     Active Substance: VANCOMYCIN HYDROCHLORIDE
     Indication: BACTERAEMIA
     Dosage: 1 G, 2X/DAY (EVERY 12 HOURS)
     Route: 042
     Dates: start: 20151117, end: 20151211
  2. MIRTAZAPINA [Suspect]
     Active Substance: MIRTAZAPINE
     Dosage: UNK
     Route: 048
     Dates: start: 201512, end: 20151217
  3. ERYTROMYCIN [Suspect]
     Active Substance: ERYTHROMYCIN
     Indication: BACTERAEMIA
     Dosage: UNK
     Route: 042
     Dates: start: 20151201, end: 20151222
  4. FLUCONAZOLE. [Suspect]
     Active Substance: FLUCONAZOLE
     Dosage: 200 MG, 1X/DAY
     Route: 042
     Dates: start: 20151130, end: 20151211
  5. MEROPENEM. [Suspect]
     Active Substance: MEROPENEM
     Indication: BACTERAEMIA
     Dosage: 1 G, 3X/DAY (EVERY 8 HOURS)
     Route: 042
     Dates: start: 20151119, end: 20151211
  6. TAZOCEL [Suspect]
     Active Substance: PIPERACILLIN SODIUM\TAZOBACTAM SODIUM
     Indication: BACTERAEMIA
     Dosage: UNK
     Route: 042
     Dates: start: 20151102, end: 20151211
  7. METAMIZOLE [Suspect]
     Active Substance: METAMIZOLE
     Indication: PAIN
     Dosage: 2 G, 3X/DAY (EVERY 8 HOUR)
     Route: 042
     Dates: start: 20151208, end: 20151217

REACTIONS (1)
  - Toxic epidermal necrolysis [Fatal]

NARRATIVE: CASE EVENT DATE: 20151214
